FAERS Safety Report 5638928-7 (Version None)
Quarter: 2008Q1

REPORT INFORMATION
  Report Type: 
  Country: None (occurrence: None)
  Receive Date: 20080225
  Receipt Date: 20080225
  Transmission Date: 20080703
  Serious: Yes (Other)
  Sender: FDA-Public Use
  Company Number: None

PATIENT
  Age: 54 Year
  Sex: Female
  Weight: 89.3586 kg

DRUGS (2)
  1. ERYTHROMYCIN ETHYLSUCCINATE [Suspect]
     Indication: PNEUMONIA
     Dosage: 1TABLET ORALLY  3 TIMES PER DAY PO
     Route: 048
     Dates: start: 20080219, end: 20080221
  2. ERYTHROMYCIN ETHYLSUCCINATE [Suspect]
     Indication: RESPIRATORY TRACT INFECTION
     Dosage: 1TABLET ORALLY  3 TIMES PER DAY PO
     Route: 048
     Dates: start: 20080219, end: 20080221

REACTIONS (1)
  - RASH PRURITIC [None]
